FAERS Safety Report 10189713 (Version 1)
Quarter: 2014Q2

REPORT INFORMATION
  Report Type: Spontaneous
  Country: US (occurrence: US)
  Receive Date: 20140522
  Receipt Date: 20140522
  Transmission Date: 20141212
  Serious: Yes (Hospitalization)
  Sender: FDA-Public Use
  Company Number: US-SA-2014SA038073

PATIENT
  Age: 52 Year
  Sex: Male

DRUGS (2)
  1. LANTUS [Suspect]
     Indication: PRODUCT USED FOR UNKNOWN INDICATION
     Dosage: 50/50/25
     Route: 065
     Dates: start: 2004
  2. LANTUS [Suspect]
     Indication: PRODUCT USED FOR UNKNOWN INDICATION
     Dosage: 40 AM?50 PM
     Route: 065
     Dates: start: 2000

REACTIONS (9)
  - Infection [Recovered/Resolved]
  - White blood cell count increased [Unknown]
  - Cough [Unknown]
  - Pain [Unknown]
  - Inflammation [Unknown]
  - Musculoskeletal pain [Unknown]
  - Glycosylated haemoglobin increased [Unknown]
  - Drug ineffective [Unknown]
  - Drug administration error [Unknown]
